FAERS Safety Report 13391972 (Version 2)
Quarter: 2017Q2

REPORT INFORMATION
  Report Type: Spontaneous
  Country: FR (occurrence: FR)
  Receive Date: 20170331
  Receipt Date: 20170412
  Transmission Date: 20170830
  Serious: Yes (Hospitalization, Other)
  Sender: FDA-Public Use
  Company Number: FR-BIOMARINAP-FR-2017-113378

PATIENT
  Age: 12 Year
  Sex: Male
  Weight: 25 kg

DRUGS (1)
  1. NAGLAZYME [Suspect]
     Active Substance: GALSULFASE
     Indication: MUCOPOLYSACCHARIDOSIS VI
     Dosage: 2 MG/KG, QW
     Route: 042
     Dates: start: 201206

REACTIONS (2)
  - Mass [Not Recovered/Not Resolved]
  - Undifferentiated sarcoma [Not Recovered/Not Resolved]

NARRATIVE: CASE EVENT DATE: 201610
